FAERS Safety Report 17363644 (Version 1)
Quarter: 2020Q1

REPORT INFORMATION
  Report Type: Spontaneous
  Country: US (occurrence: US)
  Receive Date: 20200203
  Receipt Date: 20200203
  Transmission Date: 20200409
  Serious: Yes (Other)
  Sender: FDA-Public Use
  Company Number: US-SA-2020SA024246

PATIENT
  Age: 34 Year
  Sex: Female

DRUGS (1)
  1. ALLEGRA-D 24 HOUR [Suspect]
     Active Substance: FEXOFENADINE HYDROCHLORIDE\PSEUDOEPHEDRINE HYDROCHLORIDE
     Indication: SINUSITIS
     Dosage: 180 MG, QD
     Route: 065
     Dates: start: 20200122, end: 20200124

REACTIONS (6)
  - Hallucination [Unknown]
  - Hypophagia [Unknown]
  - Malaise [Unknown]
  - Insomnia [Unknown]
  - Dyspnoea [Unknown]
  - Feeling abnormal [Unknown]
